FAERS Safety Report 5907125-X (Version None)
Quarter: 2008Q4

REPORT INFORMATION
  Report Type: 
  Country: None (occurrence: None)
  Receive Date: 20081003
  Receipt Date: 20080924
  Transmission Date: 20090506
  Serious: Yes (Other)
  Sender: FDA-Public Use
  Company Number: JP-ASTRAZENECA-2008SE04549

PATIENT
  Sex: Male

DRUGS (5)
  1. BLOPRESS [Suspect]
     Indication: HYPERTENSION
     Route: 048
     Dates: end: 20080911
  2. BASEN [Concomitant]
     Route: 048
  3. CARDENALIN [Concomitant]
     Route: 048
  4. PRAVASTATIN SODIUM [Concomitant]
     Route: 048
  5. WARFARIN SODIUM [Concomitant]
     Route: 048

REACTIONS (1)
  - INTERSTITIAL LUNG DISEASE [None]
